FAERS Safety Report 4591110-7 (Version None)
Quarter: 2005Q1

REPORT INFORMATION
  Report Type: 
  Country: None (occurrence: None)
  Receive Date: 20050223
  Receipt Date: 20050223
  Transmission Date: 20050727
  Serious: Yes (Other)
  Sender: FDA-Public Use
  Company Number: None

PATIENT
  Age: 29 Year
  Sex: Female
  Weight: 56.6996 kg

DRUGS (2)
  1. ZOLOFT [Suspect]
     Indication: MIGRAINE
     Dosage: 25MG  1 PER DAY ORAL
     Route: 048
     Dates: start: 20050126, end: 20050201
  2. ZOLOFT [Suspect]
     Indication: MIGRAINE
     Dosage: 50MG  1 PER DAY ORAL
     Route: 048
     Dates: start: 20050202, end: 20050215

REACTIONS (3)
  - BLADDER DISORDER [None]
  - POLLAKIURIA [None]
  - UROGENITAL DISORDER [None]
